FAERS Safety Report 16371783 (Version 14)
Quarter: 2021Q2

REPORT INFORMATION
  Report Type: Spontaneous
  Country: US (occurrence: US)
  Receive Date: 20190530
  Receipt Date: 20210610
  Transmission Date: 20210716
  Serious: Yes (Hospitalization, Other)
  Sender: FDA-Public Use
  Company Number: US-PFIZER INC-2019230947

PATIENT
  Age: 88 Year
  Sex: Female
  Weight: 49.89 kg

DRUGS (4)
  1. IBRANCE [Suspect]
     Active Substance: PALBOCICLIB
     Indication: BREAST CANCER METASTATIC
     Dosage: 75 MG, 1X/DAY
     Route: 048
     Dates: start: 20190301, end: 20191125
  2. IBRANCE [Suspect]
     Active Substance: PALBOCICLIB
     Dosage: 75 MG, CYCLIC, (DAY 1?21 Q 28 DAYS)
     Route: 048
     Dates: start: 20190325
  3. IBRANCE [Suspect]
     Active Substance: PALBOCICLIB
     Dosage: 75 MG, CYCLIC (DAILY FOR 21 DAYS 7 DAYS OFF)
     Route: 048
     Dates: start: 20190327
  4. IBRANCE [Suspect]
     Active Substance: PALBOCICLIB
     Dosage: 75 MG, CYCLIC (ONCE DAILY X 21 DAYS, 7 DAYS OFF)
     Route: 048
     Dates: start: 20190323

REACTIONS (15)
  - Fall [Unknown]
  - Onychoclasis [Recovered/Resolved]
  - Alopecia [Recovered/Resolved]
  - Neutrophil count decreased [Unknown]
  - Urinary tract infection [Unknown]
  - Neoplasm recurrence [Unknown]
  - Memory impairment [Unknown]
  - Cerebrovascular accident [Unknown]
  - White blood cell count decreased [Unknown]
  - Product dose omission issue [Unknown]
  - Mastitis [Unknown]
  - Skin exfoliation [Unknown]
  - Accident [Unknown]
  - Fatigue [Recovered/Resolved]
  - Rash [Unknown]

NARRATIVE: CASE EVENT DATE: 2019
